FAERS Safety Report 23911870 (Version 1)
Quarter: 2024Q2

REPORT INFORMATION
  Report Type: Spontaneous
  Country: RU (occurrence: RU)
  Receive Date: 20240528
  Receipt Date: 20240528
  Transmission Date: 20240716
  Serious: Yes (Hospitalization)
  Sender: FDA-Public Use
  Company Number: RU-IPSEN Group, Research and Development-2024-10023

PATIENT
  Age: 35 Year
  Sex: Female

DRUGS (1)
  1. DYSPORT [Suspect]
     Active Substance: ABOBOTULINUMTOXINA
     Indication: Product used for unknown indication
     Dosage: 10-12 UNITS, ROUTE: MICROPAPULARLY SUPERFICIALLY INTO THE SKIN OF THE LOWER EYELIDS
     Route: 050
     Dates: start: 20240428, end: 20240428

REACTIONS (8)
  - Muscular weakness [Recovering/Resolving]
  - Myalgia [Recovering/Resolving]
  - Dizziness [Recovering/Resolving]
  - Musculoskeletal discomfort [Recovering/Resolving]
  - Mastication disorder [Recovering/Resolving]
  - Speech disorder [Recovering/Resolving]
  - Myopathy [Recovering/Resolving]
  - Off label use [Unknown]

NARRATIVE: CASE EVENT DATE: 20240428
